FAERS Safety Report 5913108-6 (Version None)
Quarter: 2008Q4

REPORT INFORMATION
  Report Type: 
  Country: None (occurrence: None)
  Receive Date: 20081008
  Receipt Date: 20081008
  Transmission Date: 20090506
  Serious: Yes (Other)
  Sender: FDA-Public Use
  Company Number: None

PATIENT
  Age: 21 Year
  Sex: Female
  Weight: 58.0604 kg

DRUGS (1)
  1. RISPERDAL [Suspect]
     Indication: SCHIZOPHRENIA
     Dosage: RISPERDAL 2 MG Q12 HRS

REACTIONS (3)
  - HEART RATE INCREASED [None]
  - MUSCLE RIGIDITY [None]
  - TREMOR [None]
